FAERS Safety Report 5159555-4 (Version None)
Quarter: 2006Q4

REPORT INFORMATION
  Report Type: 
  Country: None (occurrence: None)
  Receive Date: 20061120
  Receipt Date: 20061108
  Transmission Date: 20070319
  Serious: Yes (Other)
  Sender: FDA-Public Use
  Company Number: 2006SP002763

PATIENT
  Age: 42 Year
  Sex: Female

DRUGS (2)
  1. PEGETRON [Suspect]
     Indication: HEPATITIS C VIRUS
  2. COPAXONE [Suspect]
     Indication: MULTIPLE SCLEROSIS

REACTIONS (2)
  - DRUG INTERACTION [None]
  - MULTIPLE SCLEROSIS RELAPSE [None]
